FAERS Safety Report 13647068 (Version 1)
Quarter: 2017Q2

REPORT INFORMATION
  Report Type: Spontaneous
  Country: US (occurrence: US)
  Receive Date: 20170613
  Receipt Date: 20170613
  Transmission Date: 20170830
  Serious: No
  Sender: FDA-Public Use
  Company Number: None

PATIENT
  Age: 37 Year
  Sex: Male
  Weight: 80.55 kg

DRUGS (8)
  1. LAMOTRIGINE. [Suspect]
     Active Substance: LAMOTRIGINE
     Indication: BIPOLAR II DISORDER
     Dosage: ?          QUANTITY:1 TABLET(S);?
     Route: 048
     Dates: start: 20170611, end: 20170611
  2. PSYLLIUM [Concomitant]
     Active Substance: PLANTAGO SEED
  3. CERTIRIZINE HYDROCHLORIDE [Concomitant]
  4. VITAMIN D3 [Concomitant]
     Active Substance: CHOLECALCIFEROL
  5. IBUPROFEN. [Concomitant]
     Active Substance: IBUPROFEN
  6. WHEY PROTEIN [Concomitant]
     Active Substance: WHEY
  7. LOSARTAN. [Suspect]
     Active Substance: LOSARTAN
     Indication: HYPERTENSION
     Dosage: ?          QUANTITY:1 TABLET(S);?
     Route: 048
  8. FISH OILS [Concomitant]

REACTIONS (14)
  - Dizziness [None]
  - Seizure [None]
  - Product substitution issue [None]
  - Hyperhidrosis [None]
  - Gait disturbance [None]
  - Disorientation [None]
  - Blood pressure increased [None]
  - Heart rate increased [None]
  - Fatigue [None]
  - Headache [None]
  - Vision blurred [None]
  - Feeling abnormal [None]
  - Muscle twitching [None]
  - Hot flush [None]

NARRATIVE: CASE EVENT DATE: 20170611
